FAERS Safety Report 5500237-4 (Version None)
Quarter: 2007Q4

REPORT INFORMATION
  Report Type: 
  Country: None (occurrence: None)
  Receive Date: 20071025
  Receipt Date: 20071010
  Transmission Date: 20080405
  Serious: Yes (Death)
  Sender: FDA-Public Use
  Company Number: JPKYO-S-20070043/FU2

PATIENT
  Age: 63 Year
  Sex: Male

DRUGS (9)
  1. NAVELBINE [Suspect]
     Indication: LARYNGEAL CANCER
     Dosage: 40 MG IV
     Route: 042
     Dates: start: 20070903, end: 20070903
  2. CRESTOR [Concomitant]
  3. DIGOXIN [Concomitant]
  4. ENALAPRIL MALEATE [Concomitant]
  5. WARFARIN SODIUM [Concomitant]
  6. ALLOPURINOL [Concomitant]
  7. CARVEDILOL [Concomitant]
  8. JUZENTAIHOTO [Concomitant]
  9. KAKKON-TO [Concomitant]

REACTIONS (3)
  - ANAPHYLACTIC SHOCK [None]
  - CARDIO-RESPIRATORY ARREST [None]
  - DRUG INEFFECTIVE [None]
